FAERS Safety Report 13438873 (Version 2)
Quarter: 2017Q2

REPORT INFORMATION
  Report Type: Spontaneous
  Country: GR (occurrence: GR)
  Receive Date: 20170412
  Receipt Date: 20170519
  Transmission Date: 20170830
  Serious: Yes (Other)
  Sender: FDA-Public Use
  Company Number: GR-009507513-1702GRC002023

PATIENT
  Age: 70 Year
  Sex: Male
  Weight: 72 kg

DRUGS (4)
  1. PEGINTRON [Suspect]
     Active Substance: PEGINTERFERON ALFA-2B
     Dosage: RECEIVED 1/3 OF THE MEDICINE AMOUNT
     Route: 058
     Dates: start: 20170201, end: 20170201
  2. PEGINTRON [Suspect]
     Active Substance: PEGINTERFERON ALFA-2B
     Dosage: 1 INJECTION PER WEEK ON WEDNESDAYS
     Route: 058
     Dates: start: 2017, end: 201705
  3. PEGINTRON [Suspect]
     Active Substance: PEGINTERFERON ALFA-2B
     Dosage: RECEIVED SOME AMOUNT OF THE MEDICINE.
     Route: 058
     Dates: start: 20170125, end: 20170125
  4. PEGINTRON [Suspect]
     Active Substance: PEGINTERFERON ALFA-2B
     Indication: HAIRY CELL LEUKAEMIA
     Dosage: 1 INJECTION PER WEEK ON WEDNESDAYS
     Dates: start: 20160916, end: 201705

REACTIONS (9)
  - Erythropoiesis abnormal [Not Recovered/Not Resolved]
  - Underdose [Unknown]
  - Pyrexia [Not Recovered/Not Resolved]
  - Product use in unapproved indication [Unknown]
  - Weight decreased [Unknown]
  - Decreased appetite [Unknown]
  - Underdose [Unknown]
  - Product quality issue [Unknown]
  - Product quality issue [Unknown]

NARRATIVE: CASE EVENT DATE: 20160916
